FAERS Safety Report 10896976 (Version 1)
Quarter: 2015Q1

REPORT INFORMATION
  Report Type: Spontaneous
  Country: US (occurrence: None)
  Receive Date: 20150302
  Receipt Date: 20150302
  Transmission Date: 20150721
  Serious: Yes (Hospitalization)
  Sender: FDA-Public Use
  Company Number: None

PATIENT
  Age: 67 Year
  Sex: Female
  Weight: 82 kg

DRUGS (11)
  1. POTASSIUM GLUCONATE [Concomitant]
     Active Substance: POTASSIUM GLUCONATE
  2. MULTIPLE VITAMINS-MINERALS [Concomitant]
  3. CEPHALEXIN. [Suspect]
     Active Substance: CEPHALEXIN
     Indication: ANTIBIOTIC PROPHYLAXIS
     Dosage: 1 CAPSULE TID ORAL
     Route: 048
  4. ASPIRIN. [Concomitant]
     Active Substance: ASPIRIN
  5. PRAVASTATIN (PRAVACHOL) [Concomitant]
  6. CALCIUM CARBONATE. [Concomitant]
     Active Substance: CALCIUM CARBONATE
  7. CLOTRIMAZOLE-BETAMETHASONE (LOTRISONE) [Concomitant]
  8. MELOXICAM (MORBIC) [Concomitant]
  9. OMEGA-3 FATTY ACIDS (FISH OIL) [Concomitant]
  10. CEPHALEXIN. [Suspect]
     Active Substance: CEPHALEXIN
     Indication: DENTAL CARE
     Dosage: 1 CAPSULE TID ORAL
     Route: 048
  11. TRIMETHOPRIM-POLYMYXIN B (POLYTRIM) [Concomitant]

REACTIONS (3)
  - Urticaria [None]
  - Swollen tongue [None]
  - Speech disorder [None]

NARRATIVE: CASE EVENT DATE: 20140611
